FAERS Safety Report 8505138-5 (Version None)
Quarter: 2012Q3

REPORT INFORMATION
  Report Type: 
  Country: None (occurrence: None)
  Receive Date: 20120712
  Receipt Date: 20120709
  Transmission Date: 20120928
  Serious: Yes (Hospitalization)
  Sender: FDA-Public Use
  Company Number: ES-AMGEN-ESPCT2012037209

PATIENT
  Age: 71 Year
  Sex: Male

DRUGS (10)
  1. PANITUMUMAB [Suspect]
     Indication: COLORECTAL CANCER METASTATIC
     Dosage: 6 MG/KG, Q2WK
     Route: 042
     Dates: start: 20110603
  2. DULOXETIME HYDROCHLORIDE [Concomitant]
     Dosage: UNK UNK, Q12H
     Route: 048
  3. MS CONTIN [Concomitant]
     Dosage: 30 MG, Q12H
     Route: 048
  4. OXALIPLATIN [Concomitant]
     Indication: COLORECTAL CANCER METASTATIC
     Dosage: 85 MG/M2, Q2WK
     Route: 042
     Dates: start: 20110603
  5. DUPHALAC [Concomitant]
     Dosage: 10 G, Q12H
     Route: 048
  6. FLUOROURACIL [Concomitant]
     Indication: COLORECTAL CANCER METASTATIC
     Dosage: UNK UNK, Q2WK
     Route: 042
     Dates: start: 20110603
  7. LEUCOVORIN CALCIUM [Concomitant]
     Indication: COLORECTAL CANCER METASTATIC
     Dosage: 400 MG/M2, Q2WK
     Route: 042
     Dates: start: 20110603
  8. DEXAMETHASONE [Concomitant]
     Dosage: 4 MG, Q8H
  9. MORPHINE SULFATE [Concomitant]
     Dosage: 10 MG, PRN
     Route: 048
  10. OMEPRAZOLE [Concomitant]
     Dosage: 40 MG, QD
     Route: 048

REACTIONS (2)
  - OEDEMA PERIPHERAL [None]
  - HYPOCALCAEMIA [None]
